FAERS Safety Report 26069196 (Version 2)
Quarter: 2025Q4

REPORT INFORMATION
  Report Type: Report from Study
  Country: EU (occurrence: EU)
  Receive Date: 20251120
  Receipt Date: 20251127
  Transmission Date: 20260118
  Serious: No
  Sender: BAYER HEALTHCARE PHARMACEUTICALS INC.
  Company Number: EU-BAYER-2025A150921

PATIENT
  Age: 29 Year
  Sex: Female

DRUGS (1)
  1. MIRENA [Suspect]
     Active Substance: LEVONORGESTREL
     Dosage: 20?G/DAY
     Route: 015
     Dates: start: 20251105, end: 20251105

REACTIONS (4)
  - Muscle spasms [None]
  - Hypoaesthesia [None]
  - Complication of device insertion [None]
  - Skin discolouration [None]

NARRATIVE: CASE EVENT DATE: 20251105
